FAERS Safety Report 5787668-2 (Version None)
Quarter: 2008Q2

REPORT INFORMATION
  Report Type: 
  Country: None (occurrence: None)
  Receive Date: 20080625
  Receipt Date: 20071101
  Transmission Date: 20081010
  Serious: No
  Sender: FDA-Public Use
  Company Number: US-ASTRAZENECA-2007UW25449

PATIENT
  Age: 2 Year
  Sex: Male
  Weight: 13.2 kg

DRUGS (3)
  1. PULMICORT RESPULES [Suspect]
     Indication: ASTHMA
     Dosage: 0.25MG/2ML TWICE DAILY
     Route: 055
     Dates: start: 20061001
  2. PULMICORT RESPULES [Suspect]
     Dosage: 0.5MG/2ML TWICE DAILY
     Route: 055
  3. ALBUTEROL [Suspect]
     Route: 055

REACTIONS (3)
  - DRUG ADMINISTRATION ERROR [None]
  - INFLUENZA [None]
  - PULMONARY CONGESTION [None]
